FAERS Safety Report 5582493-X (Version None)
Quarter: 2007Q4

REPORT INFORMATION
  Report Type: 
  Country: None (occurrence: None)
  Receive Date: 20071130
  Receipt Date: 20070403
  Transmission Date: 20080405
  Serious: Yes (Disabling, Other)
  Sender: FDA-Public Use
  Company Number: WAES 0704USA00683

PATIENT
  Sex: Female

DRUGS (10)
  1. FOSAMAX [Suspect]
     Indication: OSTEOPOROSIS
     Dosage: 10 MG/DAILY/PO
     Route: 048
  2. ATIVAN [Concomitant]
  3. CELEBREX [Concomitant]
  4. DETROL LA [Concomitant]
  5. TALACEN [Concomitant]
  6. ZOCOR [Concomitant]
  7. ZOLOFT [Concomitant]
  8. METFORMIN HCL [Concomitant]
  9. OMEPRAZOLE [Concomitant]
  10. TRAZODONE HYDROCHLORIDE [Concomitant]

REACTIONS (1)
  - OSTEONECROSIS [None]
